FAERS Safety Report 12092836 (Version 1)
Quarter: 2016Q1

REPORT INFORMATION
  Report Type: Spontaneous
  Country: US (occurrence: US)
  Receive Date: 20160219
  Receipt Date: 20160219
  Transmission Date: 20160526
  Serious: No
  Sender: FDA-Public Use
  Company Number: US-TEVA-630474ACC

PATIENT
  Age: 45 Year
  Sex: Female
  Weight: 56.75 kg

DRUGS (1)
  1. TAKE ACTION [Suspect]
     Active Substance: LEVONORGESTREL
     Indication: POST COITAL CONTRACEPTION
     Dates: start: 20160120, end: 20160120

REACTIONS (2)
  - Vaginal haemorrhage [Not Recovered/Not Resolved]
  - Urethral pain [Not Recovered/Not Resolved]

NARRATIVE: CASE EVENT DATE: 20160122
